FAERS Safety Report 5660573-8 (Version None)
Quarter: 2008Q1

REPORT INFORMATION
  Report Type: 
  Country: None (occurrence: None)
  Receive Date: 20080311
  Receipt Date: 20071114
  Transmission Date: 20080703
  Serious: No
  Sender: FDA-Public Use
  Company Number: US-BAYER-200713774BCC

PATIENT
  Age: 51 Year
  Sex: Female
  Weight: 113 kg

DRUGS (11)
  1. ALEVE [Suspect]
     Indication: TOOTHACHE
     Dosage: TOTAL DAILY DOSE: 440 MG  UNIT DOSE: 220 MG
     Route: 048
     Dates: start: 20071113, end: 20071113
  2. ALEVE [Suspect]
     Dosage: TOTAL DAILY DOSE: 440 MG  UNIT DOSE: 220 MG
     Route: 048
     Dates: start: 20071114, end: 20071114
  3. XANAX [Concomitant]
  4. GLIPIZIDE [Concomitant]
  5. SIMVASTATIN [Concomitant]
  6. CYMBALTA [Concomitant]
  7. NEXIUM [Concomitant]
  8. PLAVIX [Concomitant]
  9. LOTREL [Concomitant]
  10. TOPROL [Concomitant]
  11. BLOOD THINNER [Concomitant]

REACTIONS (2)
  - HYPERSENSITIVITY [None]
  - SWELLING FACE [None]
